FAERS Safety Report 12729322 (Version 1)
Quarter: 2016Q3

REPORT INFORMATION
  Report Type: Spontaneous
  Country: FR (occurrence: FR)
  Receive Date: 20160909
  Receipt Date: 20160909
  Transmission Date: 20161109
  Serious: Yes (Hospitalization, Other)
  Sender: FDA-Public Use
  Company Number: FR-BRISTOL-MYERS SQUIBB COMPANY-BMS-2016-072876

PATIENT
  Sex: Male

DRUGS (1)
  1. NIVOLUMAB [Suspect]
     Active Substance: NIVOLUMAB
     Indication: PRODUCT USED FOR UNKNOWN INDICATION
     Dosage: 3 MG/KG, UNK
     Route: 042

REACTIONS (6)
  - Confusional state [Unknown]
  - Haemoglobin decreased [Unknown]
  - Coma [Recovered/Resolved]
  - Enterocolitis haemorrhagic [Unknown]
  - Meningitis [Unknown]
  - Hypercalcaemia [Unknown]
